FAERS Safety Report 23838378 (Version 2)
Quarter: 2024Q2

REPORT INFORMATION
  Report Type: Spontaneous
  Country: US (occurrence: US)
  Receive Date: 20240509
  Receipt Date: 20240523
  Transmission Date: 20240716
  Serious: Yes (Other)
  Sender: FDA-Public Use
  Company Number: US-INTRA-CELLULAR THERAPIES, INC.-2024ICT00454

PATIENT
  Age: 68 Year
  Sex: Female
  Weight: 65.76 kg

DRUGS (6)
  1. CAPLYTA [Suspect]
     Active Substance: LUMATEPERONE
     Indication: Bipolar disorder
     Dosage: 42 MG, 1X/DAY
     Route: 048
     Dates: start: 202403, end: 20240318
  2. CAPLYTA [Suspect]
     Active Substance: LUMATEPERONE
     Indication: Suicide attempt
  3. EFFEXOR [Suspect]
     Active Substance: VENLAFAXINE HYDROCHLORIDE
     Dosage: UNK
  4. EFFEXOR [Suspect]
     Active Substance: VENLAFAXINE HYDROCHLORIDE
     Dosage: 75 MG
  5. WELLBUTRIN [Suspect]
     Active Substance: BUPROPION HYDROCHLORIDE
  6. LAMICTAL [Suspect]
     Active Substance: LAMOTRIGINE

REACTIONS (7)
  - Psychotic disorder [Recovering/Resolving]
  - Anxiety [Recovering/Resolving]
  - Brain fog [Recovering/Resolving]
  - Constipation [Recovering/Resolving]
  - Nightmare [Recovering/Resolving]
  - Tremor [Recovering/Resolving]
  - Dizziness [Recovering/Resolving]

NARRATIVE: CASE EVENT DATE: 20240301
